FAERS Safety Report 18467592 (Version 1)
Quarter: 2020Q4

REPORT INFORMATION
  Report Type: Spontaneous
  Country: US (occurrence: US)
  Receive Date: 20201104
  Receipt Date: 20201104
  Transmission Date: 20210114
  Serious: Yes (Life-Threatening)
  Sender: FDA-Public Use
  Company Number: None

PATIENT
  Age: 70 Year
  Sex: Male
  Weight: 100.24 kg

DRUGS (1)
  1. INSULIN (INSULIN, DETEMIR, HUMAN 100UNIT/ML INJ, FLEXPEN , 3ML) [Suspect]
     Active Substance: INSULIN DETEMIR
     Indication: DIABETES MELLITUS
     Dates: start: 20181128, end: 20200504

REACTIONS (8)
  - Malaise [None]
  - Dyspnoea [None]
  - Angioedema [None]
  - Erythema [None]
  - Speech disorder [None]
  - Swollen tongue [None]
  - Lip swelling [None]
  - Dysphagia [None]

NARRATIVE: CASE EVENT DATE: 20200504
